FAERS Safety Report 13509291 (Version 1)
Quarter: 2017Q2

REPORT INFORMATION
  Report Type: Spontaneous
  Country: GB (occurrence: GB)
  Receive Date: 20170503
  Receipt Date: 20170503
  Transmission Date: 20170830
  Serious: Yes (Other)
  Sender: FDA-Public Use
  Company Number: GB-PFIZER INC-2017189687

PATIENT
  Age: 63 Year
  Sex: Male
  Weight: 113 kg

DRUGS (6)
  1. RAMIPRIL. [Concomitant]
     Active Substance: RAMIPRIL
  2. VITAMIN B12 [Concomitant]
     Active Substance: CYANOCOBALAMIN
  3. VIAGRA [Concomitant]
     Active Substance: SILDENAFIL CITRATE
  4. DOXYCYCLINE MONOHYDRATE [Suspect]
     Active Substance: DOXYCYCLINE
     Indication: FURUNCLE
     Dosage: UNK
     Route: 048
     Dates: start: 20170406, end: 20170411
  5. THYROXINE [Concomitant]
     Active Substance: LEVOTHYROXINE
  6. INSULIN [Concomitant]
     Active Substance: INSULIN NOS

REACTIONS (1)
  - Depression [Recovered/Resolved]

NARRATIVE: CASE EVENT DATE: 20170407
